FAERS Safety Report 16532827 (Version 1)
Quarter: 2019Q3

REPORT INFORMATION
  Report Type: Spontaneous
  Country: AT (occurrence: AT)
  Receive Date: 20190705
  Receipt Date: 20190705
  Transmission Date: 20191004
  Serious: Yes (Hospitalization, Other)
  Sender: FDA-Public Use
  Company Number: AT-PFIZER INC-2019279641

PATIENT
  Age: 53 Year
  Sex: Female
  Weight: 64 kg

DRUGS (2)
  1. EBETAXEL [Suspect]
     Active Substance: PACLITAXEL
     Indication: CHEMOTHERAPY
     Dosage: 210 MG, UNK
     Route: 042
     Dates: start: 20190612, end: 20190612
  2. CARBOPLATIN. [Suspect]
     Active Substance: CARBOPLATIN
     Indication: CHEMOTHERAPY
     Dosage: UNK
     Dates: start: 20190612, end: 20190612

REACTIONS (2)
  - Circulatory collapse [Recovered/Resolved]
  - Chest discomfort [Recovered/Resolved]

NARRATIVE: CASE EVENT DATE: 20190612
